FAERS Safety Report 15506841 (Version 2)
Quarter: 2018Q4

REPORT INFORMATION
  Report Type: Spontaneous
  Country: US (occurrence: US)
  Receive Date: 20181016
  Receipt Date: 20181112
  Transmission Date: 20190205
  Serious: Yes (Hospitalization, Other)
  Sender: FDA-Public Use
  Company Number: US-JNJFOC-20181013356

PATIENT
  Sex: Male

DRUGS (1)
  1. ZYTIGA [Suspect]
     Active Substance: ABIRATERONE ACETATE
     Indication: PROSTATE CANCER
     Route: 048
     Dates: start: 20171213

REACTIONS (7)
  - Pulmonary embolism [Unknown]
  - Cerebral haemorrhage [Unknown]
  - Head injury [Unknown]
  - Haemorrhage urinary tract [Unknown]
  - Contusion [Unknown]
  - Fall [Unknown]
  - Dysuria [Unknown]

NARRATIVE: CASE EVENT DATE: 2018
